FAERS Safety Report 4994476-9 (Version None)
Quarter: 2006Q2

REPORT INFORMATION
  Report Type: 
  Country: None (occurrence: None)
  Receive Date: 20060505
  Receipt Date: 20050615
  Transmission Date: 20061013
  Serious: Yes (Hospitalization, Disabling)
  Sender: FDA-Public Use
  Company Number: US-MERCK-0506USA02451

PATIENT
  Age: 39 Year
  Sex: Male
  Weight: 89 kg

DRUGS (8)
  1. VIOXX [Suspect]
     Indication: BACK PAIN
     Route: 048
     Dates: start: 20020905, end: 20021016
  2. VIOXX [Suspect]
     Route: 048
     Dates: start: 20020905, end: 20021016
  3. VIOXX [Suspect]
     Route: 048
     Dates: start: 20020101, end: 20030101
  4. VIOXX [Suspect]
     Route: 048
     Dates: start: 20020101, end: 20030101
  5. VIOXX [Suspect]
     Route: 048
     Dates: start: 20020925
  6. VIOXX [Suspect]
     Route: 048
     Dates: end: 20030101
  7. FLEXERIL [Concomitant]
     Route: 048
  8. OXAPROZIN [Concomitant]
     Route: 065

REACTIONS (9)
  - ARTHROPATHY [None]
  - BLOOD TRIGLYCERIDES INCREASED [None]
  - DISABILITY [None]
  - INTERVERTEBRAL DISC DEGENERATION [None]
  - INTERVERTEBRAL DISC PROTRUSION [None]
  - LUMBAR SPINAL STENOSIS [None]
  - MYOCARDIAL INFARCTION [None]
  - MYOFASCIAL PAIN SYNDROME [None]
  - SACROILIITIS [None]
